FAERS Safety Report 6089391-6 (Version None)
Quarter: 2009Q1

REPORT INFORMATION
  Report Type: 
  Country: None (occurrence: None)
  Receive Date: 20090224
  Receipt Date: 20090218
  Transmission Date: 20090719
  Serious: Yes (Other)
  Sender: FDA-Public Use
  Company Number: AU-ROCHE-615354

PATIENT
  Sex: Female

DRUGS (1)
  1. VALIUM [Suspect]
     Indication: ANXIETY
     Route: 065
     Dates: start: 20080101

REACTIONS (3)
  - AGORAPHOBIA [None]
  - DYSARTHRIA [None]
  - RENAL DISORDER [None]
